FAERS Safety Report 6077199-7 (Version None)
Quarter: 2009Q1

REPORT INFORMATION
  Report Type: 
  Country: None (occurrence: None)
  Receive Date: 20090211
  Receipt Date: 20090209
  Transmission Date: 20090719
  Serious: Yes (Life-Threatening, Hospitalization)
  Sender: FDA-Public Use
  Company Number: 2009SP001587

PATIENT
  Age: 40 Year
  Sex: Male

DRUGS (4)
  1. PEG-INTRON [Suspect]
     Indication: HEPATITIS C
     Dosage: 150 QW;SC
     Route: 058
     Dates: start: 20080401, end: 20081206
  2. REBETOL [Suspect]
     Indication: HEPATITIS C
     Dosage: 600 MG;TID;PO
     Route: 048
     Dates: start: 20080401, end: 20081206
  3. METHADONE HCL [Concomitant]
  4. HEMINEVRIN [Concomitant]

REACTIONS (5)
  - HYPOXIA [None]
  - INTERSTITIAL LUNG DISEASE [None]
  - LYMPHOCYTE COUNT DECREASED [None]
  - PULMONARY EMBOLISM [None]
  - WEIGHT DECREASED [None]
